FAERS Safety Report 14379438 (Version 1)
Quarter: 2018Q1

REPORT INFORMATION
  Report Type: Spontaneous
  Country: GB (occurrence: FR)
  Receive Date: 20180112
  Receipt Date: 20180112
  Transmission Date: 20180509
  Serious: Yes (Other)
  Sender: FDA-Public Use
  Company Number: FR-FRESENIUS KABI-FK201800223

PATIENT
  Age: 68 Year
  Sex: Female
  Weight: 68 kg

DRUGS (8)
  1. PROPOFOL (MANUFACTURER UNKNOWN) [Suspect]
     Active Substance: PROPOFOL
     Indication: PRODUCT USED FOR UNKNOWN INDICATION
     Route: 065
     Dates: start: 20170103, end: 20170103
  2. MYDRIATICUM [Suspect]
     Active Substance: TROPICAMIDE
     Indication: CATARACT OPERATION
     Route: 047
     Dates: start: 20170103, end: 20170103
  3. NEOSYNEPHRINE [Suspect]
     Active Substance: PHENYLEPHRINE HYDROCHLORIDE
     Indication: CATARACT OPERATION
     Route: 047
     Dates: start: 20170103, end: 20170103
  4. DESFLURANE PIRAMAL [Suspect]
     Active Substance: DESFLURANE
     Indication: GENERAL ANAESTHESIA
     Dates: start: 20170103, end: 20170103
  5. SUFENTANIL [Suspect]
     Active Substance: SUFENTANIL
     Indication: PRODUCT USED FOR UNKNOWN INDICATION
     Route: 065
     Dates: start: 20170103, end: 20170103
  6. INDOCOLLYRE [Suspect]
     Active Substance: INDOMETHACIN
     Indication: PREOPERATIVE CARE
     Route: 047
     Dates: start: 20161230, end: 20170103
  7. RIVOTRIL [Concomitant]
     Active Substance: CLONAZEPAM
     Indication: PRODUCT USED FOR UNKNOWN INDICATION
     Route: 048
     Dates: end: 20170103
  8. VITABACT [Suspect]
     Active Substance: PICLOXYDINE DIHYDROCHLORIDE
     Indication: PREOPERATIVE CARE
     Route: 047
     Dates: start: 20161230, end: 20170103

REACTIONS (4)
  - Feeding disorder [Not Recovered/Not Resolved]
  - Weight decreased [Recovered/Resolved]
  - Abdominal discomfort [Not Recovered/Not Resolved]
  - Dysgeusia [Not Recovered/Not Resolved]

NARRATIVE: CASE EVENT DATE: 2017
